FAERS Safety Report 8527455 (Version 2)
Quarter: 2013Q2

REPORT INFORMATION
  Report Type: Spontaneous
  Country: GB (occurrence: GB)
  Receive Date: 20120424
  Receipt Date: 20130619
  Transmission Date: 20140414
  Serious: Yes (Hospitalization, Other)
  Sender: FDA-Public Use
  Company Number: GB-PFIZER INC-2012094583

PATIENT
  Age: 42 Year
  Sex: Female
  Weight: 42 kg

DRUGS (14)
  1. PIPERACILLIN/TAZOBACTAM [Suspect]
     Indication: ABDOMINAL SEPSIS
     Dosage: 13.5 G DAILY
     Route: 042
     Dates: start: 20111014, end: 20111020
  2. ACETAMINOPHEN [Suspect]
     Indication: POSTOPERATIVE ANALGESIA
     Dosage: 4 G DAILY
     Route: 042
     Dates: start: 20111014, end: 20111019
  3. ACETAMINOPHEN [Suspect]
     Dosage: 600 MG EVERY 6 HOURS
     Route: 042
     Dates: start: 20111024
  4. ACETAMINOPHEN [Suspect]
     Route: 048
  5. MESALAZINE [Concomitant]
     Indication: CROHN^S DISEASE
     Route: 048
     Dates: end: 20111013
  6. MEROPENEM [Concomitant]
     Indication: ABDOMINAL SEPSIS
     Dosage: 3 MG DAILY (ALSO REPORTED AS 3 G DAILY)
     Dates: start: 20111020
  7. TINZAPARIN SODIUM [Concomitant]
     Indication: THROMBOSIS PROPHYLAXIS
     Dosage: 1 DOSE FORM OF 3500 UNITS DAILY
     Route: 058
     Dates: start: 20111014, end: 20111111
  8. METRONIDAZOLE [Concomitant]
     Indication: ABDOMINAL SEPSIS
     Dosage: 1.5 G DAILY
     Route: 042
     Dates: start: 20111014, end: 20111021
  9. OMEPRAZOLE [Concomitant]
     Indication: PROPHYLAXIS
     Dosage: 40 MG DAILY
     Route: 042
     Dates: start: 20111014, end: 20111018
  10. FUROSEMIDE [Concomitant]
     Dosage: STAT DOSE
     Route: 042
  11. POTASSIUM CHLORIDE [Concomitant]
     Dosage: STAT DOSE
     Route: 048
  12. POTASSIUM CHLORIDE [Concomitant]
     Dosage: STAT DOSE
     Route: 042
  13. SALBUTAMOL [Concomitant]
     Dosage: NEBULES
  14. MORPHINE [Concomitant]
     Indication: ANALGESIC THERAPY
     Route: 042

REACTIONS (3)
  - Overdose [Unknown]
  - Coagulopathy [Recovering/Resolving]
  - Liver function test abnormal [Recovering/Resolving]
